FAERS Safety Report 8449183-7 (Version None)
Quarter: 2012Q2

REPORT INFORMATION
  Report Type: 
  Country: None (occurrence: None)
  Receive Date: 20120619
  Receipt Date: 20111207
  Transmission Date: 20120825
  Serious: Yes (Other)
  Sender: FDA-Public Use
  Company Number: US-TEVA-2011006146

PATIENT
  Sex: Female

DRUGS (7)
  1. LEVSIN PB [Concomitant]
  2. TOPAMAX [Concomitant]
  3. WELLBUTRIN [Concomitant]
  4. ACTIQ [Suspect]
     Indication: BACK PAIN
     Route: 002
     Dates: start: 20010101, end: 20110921
  5. AVINZA [Concomitant]
  6. LORAZEPAM [Concomitant]
  7. LEXAPRO [Concomitant]

REACTIONS (8)
  - LOSS OF CONSCIOUSNESS [None]
  - CONTUSION [None]
  - CONVULSION [None]
  - MEMORY IMPAIRMENT [None]
  - PAIN [None]
  - HEADACHE [None]
  - VASODILATATION [None]
  - FALL [None]
